FAERS Safety Report 4945368-2 (Version None)
Quarter: 2006Q1

REPORT INFORMATION
  Report Type: 
  Country: None (occurrence: None)
  Receive Date: 20060316
  Receipt Date: 20050223
  Transmission Date: 20060701
  Serious: Yes (Hospitalization)
  Sender: FDA-Public Use
  Company Number: PHBS2005JP02683

PATIENT
  Age: 10 Year
  Sex: Male
  Weight: 39 kg

DRUGS (3)
  1. VOLTAREN [Suspect]
     Indication: BACK PAIN
     Dosage: 12.5 MG, ONCE/SINGLE
     Route: 054
     Dates: start: 20040903, end: 20040903
  2. PONTAL [Suspect]
     Dosage: 8 ML, TID
     Route: 048
     Dates: start: 20040903, end: 20040903
  3. LOXONIN [Suspect]

REACTIONS (19)
  - ABDOMINAL DISCOMFORT [None]
  - BACK PAIN [None]
  - BETA 2 MICROGLOBULIN INCREASED [None]
  - BLOOD CREATININE INCREASED [None]
  - BLOOD UREA INCREASED [None]
  - BRAIN OEDEMA [None]
  - CONVULSION [None]
  - DEPRESSED LEVEL OF CONSCIOUSNESS [None]
  - HEADACHE [None]
  - HYPERTENSIVE CRISIS [None]
  - HYPERTENSIVE ENCEPHALOPATHY [None]
  - LEUKOENCEPHALOPATHY [None]
  - OEDEMA [None]
  - OLIGURIA [None]
  - PROTEINURIA [None]
  - RENAL FAILURE ACUTE [None]
  - RENAL HYPERTENSION [None]
  - RESTLESSNESS [None]
  - VISUAL DISTURBANCE [None]
